FAERS Safety Report 19511973 (Version 3)
Quarter: 2021Q3

REPORT INFORMATION
  Report Type: Report from Study
  Country: CA (occurrence: CA)
  Receive Date: 20210709
  Receipt Date: 20210920
  Transmission Date: 20211014
  Serious: Yes (Life-Threatening, Other)
  Sender: FDA-Public Use
  Company Number: CA-ASTRAZENECA-2021A599823

PATIENT
  Sex: Male

DRUGS (15)
  1. ALLOPURINOL. [Concomitant]
     Active Substance: ALLOPURINOL
  2. DOCUSATE/DANTRON [Concomitant]
  3. INFLIXIMAB [Concomitant]
     Active Substance: INFLIXIMAB
  4. CALQUENCE [Suspect]
     Active Substance: ACALABRUTINIB
     Indication: CHRONIC LYMPHOCYTIC LEUKAEMIA
     Route: 048
     Dates: start: 20210823
  5. FERROUS FUMARATE [Concomitant]
     Active Substance: FERROUS FUMARATE
  6. FINASTERIDE. [Concomitant]
     Active Substance: FINASTERIDE
  7. ESCIN\LEVOTHYROXINE [Concomitant]
     Active Substance: ESCIN\LEVOTHYROXINE
  8. CALQUENCE [Suspect]
     Active Substance: ACALABRUTINIB
     Indication: CHRONIC LYMPHOCYTIC LEUKAEMIA
     Route: 048
     Dates: start: 20210617, end: 20210705
  9. PANTOPRAZOLE [Concomitant]
     Active Substance: PANTOPRAZOLE
  10. VITAMIN D [Concomitant]
     Active Substance: VITAMIN D NOS
  11. MIRTAZAPINE. [Concomitant]
     Active Substance: MIRTAZAPINE
  12. NASONEX [Concomitant]
     Active Substance: MOMETASONE FUROATE
  13. TAMSULOSIN [Concomitant]
     Active Substance: TAMSULOSIN
  14. WARFARIN [Concomitant]
     Active Substance: WARFARIN
     Dates: end: 20210615
  15. APIXABAN [Concomitant]
     Active Substance: APIXABAN
     Dates: start: 20210617

REACTIONS (2)
  - Seizure [Recovering/Resolving]
  - Cerebral haemorrhage [Recovering/Resolving]
